FAERS Safety Report 11098270 (Version 1)
Quarter: 2015Q2

REPORT INFORMATION
  Report Type: Spontaneous
  Country: ES (occurrence: ES)
  Receive Date: 20150507
  Receipt Date: 20150507
  Transmission Date: 20150821
  Serious: Yes (Death)
  Sender: FDA-Public Use
  Company Number: PHHY2015ES050607

PATIENT
  Age: 30 Year
  Sex: Female

DRUGS (2)
  1. METRONIDAZOLE. [Concomitant]
     Active Substance: METRONIDAZOLE
     Indication: CLOSTRIDIUM DIFFICILE INFECTION
     Route: 065
  2. ARTEMETHER,BENFLUMETOL [Suspect]
     Active Substance: ARTEMETHER\LUMEFANTRINE
     Indication: PLASMODIUM FALCIPARUM INFECTION
     Route: 065

REACTIONS (2)
  - Death [Fatal]
  - Drug ineffective [Unknown]
